FAERS Safety Report 24765056 (Version 1)
Quarter: 2024Q4

REPORT INFORMATION
  Report Type: Spontaneous
  Country: US (occurrence: None)
  Receive Date: 20241219
  Receipt Date: 20241219
  Transmission Date: 20250115
  Serious: Yes (Hospitalization)
  Sender: Public
  Company Number: None

PATIENT
  Age: 34 Year
  Sex: Male
  Weight: 66 kg

DRUGS (1)
  1. BUPROPION HYDROCHLORIDE [Suspect]
     Active Substance: BUPROPION HYDROCHLORIDE
     Indication: Depression
     Dosage: 50.00 MG 3 TIMES A DAY ORAL?
     Route: 048

REACTIONS (5)
  - Hip fracture [None]
  - Cerebral haemorrhage [None]
  - Dysphagia [None]
  - Fall [None]
  - Tremor [None]

NARRATIVE: CASE EVENT DATE: 20240410
